FAERS Safety Report 6039483-2 (Version None)
Quarter: 2009Q1

REPORT INFORMATION
  Report Type: 
  Country: None (occurrence: None)
  Receive Date: 20090114
  Receipt Date: 20090106
  Transmission Date: 20090719
  Serious: Yes (Other)
  Sender: FDA-Public Use
  Company Number: CHPA2008US21635

PATIENT
  Age: 20 Year
  Sex: Female

DRUGS (3)
  1. NICOTINE [Suspect]
     Indication: SMOKING CESSATION THERAPY
     Dosage: 21 MG, QD, TRANSDERMAL; 1 PATCH DAILY DURING DAYTIME, TRANSDERMAL
     Route: 062
     Dates: start: 20081101
  2. NICOTINE [Suspect]
     Indication: SMOKING CESSATION THERAPY
     Dosage: 21 MG, QD, TRANSDERMAL; 1 PATCH DAILY DURING DAYTIME, TRANSDERMAL
     Route: 062
     Dates: start: 20081201
  3. ACETAMINOPHEN [Concomitant]

REACTIONS (8)
  - APPLICATION SITE ERYTHEMA [None]
  - APPLICATION SITE REACTION [None]
  - APPLICATION SITE SCAB [None]
  - APPLICATION SITE SCAR [None]
  - APPLICATION SITE URTICARIA [None]
  - INCORRECT DOSE ADMINISTERED [None]
  - PRODUCT QUALITY ISSUE [None]
  - SKIN REACTION [None]
